FAERS Safety Report 5977133-1 (Version None)
Quarter: 2008Q4

REPORT INFORMATION
  Report Type: 
  Country: None (occurrence: None)
  Receive Date: 20081203
  Receipt Date: 20080305
  Transmission Date: 20090506
  Serious: Yes (Death, Hospitalization)
  Sender: FDA-Public Use
  Company Number: US-BAYER-200811299GPV

PATIENT
  Age: 63 Year
  Sex: Male
  Weight: 78 kg

DRUGS (9)
  1. CAMPATH [Suspect]
     Indication: B-CELL SMALL LYMPHOCYTIC LYMPHOMA
     Dosage: TOTAL DAILY DOSE: 30 MG
     Route: 058
     Dates: start: 20071126, end: 20080104
  2. SUMETROLIM [Concomitant]
     Indication: ANTIFUNGAL PROPHYLAXIS
     Route: 048
     Dates: start: 20071126
  3. DALTEPARIN SODIUM [Concomitant]
     Indication: THROMBOSIS PROPHYLAXIS
     Route: 058
     Dates: start: 20071221
  4. ZOVIRAX [Concomitant]
     Indication: ANTIVIRAL PROPHYLAXIS
     Route: 042
     Dates: start: 20080110
  5. ZOVIRAX [Concomitant]
     Route: 048
     Dates: start: 20071126, end: 20080111
  6. SANDONORM [Concomitant]
  7. MILURIT [Concomitant]
     Route: 065
  8. FRAGMIN [Concomitant]
     Route: 058
  9. MYCOMAX [Concomitant]

REACTIONS (8)
  - ATRIAL FIBRILLATION [None]
  - BRONCHOPULMONARY ASPERGILLOSIS [None]
  - CACHEXIA [None]
  - ENCEPHALITIS [None]
  - FALL [None]
  - FRACTURED ISCHIUM [None]
  - PANCYTOPENIA [None]
  - URINARY TRACT INFECTION [None]
